FAERS Safety Report 5089666-3 (Version None)
Quarter: 2006Q3

REPORT INFORMATION
  Report Type: 
  Country: None (occurrence: None)
  Receive Date: 20060731
  Receipt Date: 20051102
  Transmission Date: 20061208
  Serious: Yes (Hospitalization, Other)
  Sender: FDA-Public Use
  Company Number: USA0511112586

PATIENT
  Age: 87 Year
  Sex: Female
  Weight: 44.5 kg

DRUGS (11)
  1. FORTEO [Suspect]
     Dosage: SUBCUTANEOUS
     Route: 058
  2. ALBUTEROL SULFATE W/IPRATROPIUM BROMIDE [Concomitant]
  3. LOVENOX [Concomitant]
  4. FLONASE [Concomitant]
  5. MUCINEX [Concomitant]
  6. LEVAQUIN [Concomitant]
  7. REGLAN [Concomitant]
  8. SINGULAIR [Concomitant]
  9. ROCEPHIN [Concomitant]
  10. PREVACID [Concomitant]
  11. COMPAZINE [Concomitant]

REACTIONS (1)
  - PNEUMONIA [None]
